FAERS Safety Report 5907363-6 (Version None)
Quarter: 2008Q4

REPORT INFORMATION
  Report Type: 
  Country: None (occurrence: None)
  Receive Date: 20081003
  Receipt Date: 20080923
  Transmission Date: 20090506
  Serious: Yes (Other)
  Sender: FDA-Public Use
  Company Number: US-ELI_LILLY_AND_COMPANY-US200809005197

PATIENT
  Age: 56 Year
  Sex: Male

DRUGS (4)
  1. CIALIS [Suspect]
     Dosage: 20 MG, UNK
     Dates: start: 20030901
  2. ADVAIR DISKUS 100/50 [Concomitant]
  3. ABREVA [Concomitant]
  4. ALBUTEROL [Concomitant]

REACTIONS (2)
  - ALPHA-1 ANTI-TRYPSIN DEFICIENCY [None]
  - CHRONIC OBSTRUCTIVE PULMONARY DISEASE [None]
